FAERS Safety Report 10202609 (Version 1)
Quarter: 2014Q2

REPORT INFORMATION
  Report Type: Spontaneous
  Country: DK (occurrence: DK)
  Receive Date: 20140528
  Receipt Date: 20140528
  Transmission Date: 20141212
  Serious: Yes (Hospitalization)
  Sender: FDA-Public Use
  Company Number: DK-ACTAVIS-2014-10807

PATIENT
  Age: 58 Year
  Sex: Female

DRUGS (2)
  1. EPIRUBICIN ACTAVIS [Suspect]
     Indication: BREAST CANCER
     Dosage: 160 MG, UNKNOWN( SECOND SERIES)
     Route: 050
     Dates: start: 20140226, end: 20140226
  2. HJERTEMAGNYL [Concomitant]
     Indication: PRODUCT USED FOR UNKNOWN INDICATION
     Dosage: UNK
     Route: 065

REACTIONS (5)
  - Infusion site swelling [Recovering/Resolving]
  - Infusion related reaction [Recovering/Resolving]
  - Infusion site erythema [Recovering/Resolving]
  - Pyrexia [Unknown]
  - Drug administration error [Recovered/Resolved]
